FAERS Safety Report 8843114 (Version 2)
Quarter: 2013Q1

REPORT INFORMATION
  Report Type: Spontaneous
  Country: US (occurrence: US)
  Receive Date: 20121016
  Receipt Date: 20130206
  Transmission Date: 20140127
  Serious: Yes (Hospitalization)
  Sender: FDA-Public Use
  Company Number: US-FRI-1000039363

PATIENT
  Age: 47 Year
  Sex: Female
  Weight: 88.4 kg

DRUGS (3)
  1. VIIBRYD [Suspect]
     Indication: DEPRESSION
     Dosage: 10 MG
     Route: 048
     Dates: start: 20120829, end: 20121010
  2. ATIVAN [Concomitant]
     Dosage: 2 MG
  3. WELLBUTRIN [Concomitant]
     Dosage: 300 MG
     Route: 048

REACTIONS (4)
  - Grand mal convulsion [Recovering/Resolving]
  - Head injury [Recovering/Resolving]
  - Concussion [Recovering/Resolving]
  - Fall [Recovering/Resolving]
